FAERS Safety Report 6640706-7 (Version None)
Quarter: 2010Q1

REPORT INFORMATION
  Report Type: 
  Country: None (occurrence: None)
  Receive Date: 20100318
  Receipt Date: 20100305
  Transmission Date: 20100710
  Serious: Yes (Other)
  Sender: FDA-Public Use
  Company Number: US-ELI_LILLY_AND_COMPANY-US201001002577

PATIENT
  Sex: Female
  Weight: 62.585 kg

DRUGS (10)
  1. BYETTA [Suspect]
     Dosage: UNK, UNKNOWN
     Dates: start: 20061013, end: 20081212
  2. GLUCOPHAGE [Concomitant]
     Indication: DIABETES MELLITUS
  3. LOVASTATIN [Concomitant]
     Indication: BLOOD CHOLESTEROL
  4. HYDROCHLOROTHIAZIDE [Concomitant]
  5. TYLENOL                                 /SCH/ [Concomitant]
  6. ISOSORBIDE [Concomitant]
  7. AVANDIA [Concomitant]
  8. PRAVASTATIN [Concomitant]
  9. JANUMET [Concomitant]
  10. TRICOR [Concomitant]

REACTIONS (1)
  - PANCREATITIS ACUTE [None]
